FAERS Safety Report 6336835-8 (Version None)
Quarter: 2009Q3

REPORT INFORMATION
  Report Type: 
  Country: None (occurrence: None)
  Receive Date: 20090901
  Receipt Date: 20090820
  Transmission Date: 20100115
  Serious: Yes (Other)
  Sender: FDA-Public Use
  Company Number: US-ASTRAZENECA-2008UW27810

PATIENT
  Age: 673 Month
  Sex: Male
  Weight: 97.1 kg

DRUGS (1)
  1. CRESTOR [Suspect]
     Route: 048
     Dates: end: 20080801

REACTIONS (1)
  - MYASTHENIA GRAVIS [None]
